FAERS Safety Report 16167853 (Version 1)
Quarter: 2019Q2

REPORT INFORMATION
  Report Type: Spontaneous
  Country: DE (occurrence: DE)
  Receive Date: 20190408
  Receipt Date: 20190408
  Transmission Date: 20190711
  Serious: Yes (Hospitalization)
  Sender: FDA-Public Use
  Company Number: DE-ROCHE-2296384

PATIENT
  Sex: Female

DRUGS (3)
  1. DECORTIN-H [Suspect]
     Active Substance: PREDNISOLONE
     Route: 065
  2. ROACTEMRA [Suspect]
     Active Substance: TOCILIZUMAB
     Indication: POLYARTHRITIS
     Route: 058
  3. DECORTIN-H [Suspect]
     Active Substance: PREDNISOLONE
     Indication: POLYARTHRITIS
     Route: 065

REACTIONS (4)
  - Erysipelas [Unknown]
  - Eczema [Unknown]
  - Localised infection [Unknown]
  - Rheumatoid nodule [Unknown]
